FAERS Safety Report 24670735 (Version 1)
Quarter: 2024Q4

REPORT INFORMATION
  Report Type: Spontaneous
  Country: US (occurrence: US)
  Receive Date: 20241127
  Receipt Date: 20241127
  Transmission Date: 20250115
  Serious: Yes (Hospitalization, Other)
  Sender: FRESENIUS KABI
  Company Number: US-FreseniusKabi-FK202417685

PATIENT
  Age: 33 Year
  Sex: Female

DRUGS (1)
  1. RIFAMPIN [Suspect]
     Active Substance: RIFAMPIN
     Indication: Latent tuberculosis
     Dosage: INITIATED ON RIFAMPIN 600MG DAILY WITH A PLANNED 4-MONTH COURSE

REACTIONS (1)
  - Glomerulonephritis minimal lesion [Unknown]
